FAERS Safety Report 25450355 (Version 2)
Quarter: 2025Q3

REPORT INFORMATION
  Report Type: Spontaneous
  Country: GB (occurrence: GB)
  Receive Date: 20250618
  Receipt Date: 20250924
  Transmission Date: 20251021
  Serious: Yes (Other)
  Sender: MYLAN
  Company Number: GB-MYLANLABS-2025M1049582

PATIENT
  Age: 82 Year
  Sex: Female

DRUGS (1)
  1. METHOTREXATE [Suspect]
     Active Substance: METHOTREXATE
     Indication: Nephritis
     Dosage: 20 MILLIGRAM, QW

REACTIONS (2)
  - Epstein Barr virus positive mucocutaneous ulcer [Recovering/Resolving]
  - Off label use [Unknown]
